FAERS Safety Report 15093032 (Version 2)
Quarter: 2018Q3

REPORT INFORMATION
  Report Type: Spontaneous
  Country: US (occurrence: US)
  Receive Date: 20180629
  Receipt Date: 20180708
  Transmission Date: 20181010
  Serious: No
  Sender: FDA-Public Use
  Company Number: US-JNJFOC-20180610659

PATIENT
  Sex: Female
  Weight: 112.04 kg

DRUGS (1)
  1. DURAGESIC [Suspect]
     Active Substance: FENTANYL
     Indication: BACK PAIN
     Route: 062

REACTIONS (3)
  - Product adhesion issue [Unknown]
  - Drug dose omission [Unknown]
  - Wrong technique in product usage process [Unknown]
